FAERS Safety Report 15142639 (Version 1)
Quarter: 2018Q3

REPORT INFORMATION
  Report Type: Spontaneous
  Country: JP (occurrence: JP)
  Receive Date: 20180713
  Receipt Date: 20180713
  Transmission Date: 20181010
  Serious: Yes (Death, Other)
  Sender: FDA-Public Use
  Company Number: JP-SA-2018SA175774

PATIENT
  Age: 69 Year
  Sex: Male

DRUGS (3)
  1. DOCETAXEL. [Suspect]
     Active Substance: DOCETAXEL
     Dosage: 60 MG/M2, Q4W
  2. 5?FLUOROURACIL [FLUOROURACIL] [Suspect]
     Active Substance: FLUOROURACIL
     Dosage: 1000 MG PER DAY, Q4W
  3. CISPLATIN. [Suspect]
     Active Substance: CISPLATIN
     Dosage: 60 MG/M2, Q4W

REACTIONS (1)
  - Death [Fatal]
